FAERS Safety Report 5175145-1 (Version None)
Quarter: 2006Q4

REPORT INFORMATION
  Report Type: 
  Country: None (occurrence: None)
  Receive Date: 20061206
  Receipt Date: 20061121
  Transmission Date: 20070319
  Serious: Yes (Other)
  Sender: FDA-Public Use
  Company Number: 2006EU003127

PATIENT
  Age: 55 Year
  Sex: Female

DRUGS (4)
  1. PROTOPIC [Suspect]
     Indication: GRAFT VERSUS HOST DISEASE
     Dosage: 0.1%, BID, TOPICAL
     Route: 061
  2. PROGRAF [Suspect]
     Indication: GRAFT VERSUS HOST DISEASE
     Dosage: 1.5 MG, BID, ORAL, SEE IMAGE
     Route: 048
  3. MYCOPHENOLATE MOFETIL [Concomitant]
  4. PREDNISONE TAB [Concomitant]

REACTIONS (5)
  - BLOOD CREATININE INCREASED [None]
  - CONDITION AGGRAVATED [None]
  - GRAFT VERSUS HOST DISEASE [None]
  - OVERDOSE [None]
  - TREMOR [None]
